FAERS Safety Report 7552776-2 (Version None)
Quarter: 2011Q2

REPORT INFORMATION
  Report Type: 
  Country: None (occurrence: None)
  Receive Date: 20110616
  Receipt Date: 20110613
  Transmission Date: 20111010
  Serious: Yes (Other)
  Sender: FDA-Public Use
  Company Number: US-PFIZER INC-2011129701

PATIENT
  Sex: Male
  Weight: 98.413 kg

DRUGS (6)
  1. PERCOCET [Suspect]
     Indication: BACK PAIN
     Dosage: UNK, 4X/DAY
     Route: 048
  2. MORPHINE [Concomitant]
     Indication: BACK PAIN
  3. LYRICA [Suspect]
     Indication: NEURALGIA
     Dosage: UNK
     Route: 048
     Dates: start: 20110120, end: 20110601
  4. MORPHINE [Concomitant]
     Indication: NEURALGIA
     Dosage: 30 MG, DAILY
  5. LYRICA [Suspect]
     Indication: TYPE 2 DIABETES MELLITUS
  6. PERCOCET [Suspect]
     Indication: NEURALGIA

REACTIONS (4)
  - PERIPHERAL NERVE INJURY [None]
  - INSOMNIA [None]
  - BURNING SENSATION [None]
  - DRUG INEFFECTIVE [None]
